FAERS Safety Report 9400245 (Version 2)
Quarter: 2013Q4

REPORT INFORMATION
  Report Type: Report from Study
  Country: US (occurrence: US)
  Receive Date: 20130715
  Receipt Date: 20131106
  Transmission Date: 20140711
  Serious: Yes (Other)
  Sender: FDA-Public Use
  Company Number: US-BAYER-2013-083657

PATIENT
  Age: 58 Year
  Sex: Male

DRUGS (1)
  1. BETASERON [Suspect]
     Indication: RELAPSING-REMITTING MULTIPLE SCLEROSIS
     Dosage: 8 MIU, QOD
     Route: 058
     Dates: start: 20130131

REACTIONS (8)
  - Fall [Recovered/Resolved]
  - Ankle fracture [Recovered/Resolved]
  - Balance disorder [None]
  - Fall [Recovered/Resolved]
  - Fall [Recovered/Resolved]
  - Balance disorder [Not Recovered/Not Resolved]
  - Muscle spasms [Recovering/Resolving]
  - Gait disturbance [Recovering/Resolving]
